FAERS Safety Report 19487986 (Version 1)
Quarter: 2021Q3

REPORT INFORMATION
  Report Type: Spontaneous
  Country: PL (occurrence: PL)
  Receive Date: 20210702
  Receipt Date: 20210702
  Transmission Date: 20211014
  Serious: Yes (Hospitalization, Other)
  Sender: FDA-Public Use
  Company Number: PL-PFIZER INC-2021730476

PATIENT
  Age: 77 Year
  Sex: Female
  Weight: 85 kg

DRUGS (1)
  1. SUTENT [Suspect]
     Active Substance: SUNITINIB MALATE
     Indication: RENAL CANCER
     Dosage: 50 MG
     Route: 048
     Dates: start: 20160115, end: 20170519

REACTIONS (3)
  - Skin erosion [Not Recovered/Not Resolved]
  - Blister [Not Recovered/Not Resolved]
  - Skin ulcer [Not Recovered/Not Resolved]
